FAERS Safety Report 18605206 (Version 1)
Quarter: 2020Q4

REPORT INFORMATION
  Report Type: Spontaneous
  Country: US (occurrence: US)
  Receive Date: 20201211
  Receipt Date: 20201211
  Transmission Date: 20210114
  Serious: No
  Sender: FDA-Public Use
  Company Number: US-TAKEDA-2020TUS052525

PATIENT
  Age: 29 Year
  Sex: Female

DRUGS (2)
  1. RISPERDAL [Concomitant]
     Active Substance: RISPERIDONE
  2. ADDERALL XR [Suspect]
     Active Substance: AMPHETAMINE ASPARTATE\AMPHETAMINE SULFATE\DEXTROAMPHETAMINE SACCHARATE\DEXTROAMPHETAMINE SULFATE
     Indication: BIPOLAR DISORDER
     Dosage: 1.5 MILLIGRAM, QD
     Route: 048
     Dates: start: 20201106

REACTIONS (12)
  - Abdominal distension [Recovered/Resolved]
  - Pyrexia [Recovered/Resolved]
  - Vomiting projectile [Recovered/Resolved]
  - Insomnia [Not Recovered/Not Resolved]
  - Blood urine present [Recovered/Resolved]
  - Breast swelling [Not Recovered/Not Resolved]
  - Psychomotor hyperactivity [Recovered/Resolved]
  - Breast tenderness [Not Recovered/Not Resolved]
  - Micturition urgency [Recovered/Resolved]
  - Vision blurred [Recovered/Resolved]
  - Somnolence [Unknown]
  - Abdominal pain [Recovered/Resolved]

NARRATIVE: CASE EVENT DATE: 20201106
